FAERS Safety Report 6548458-6 (Version None)
Quarter: 2010Q1

REPORT INFORMATION
  Report Type: 
  Country: None (occurrence: None)
  Receive Date: 20100124
  Receipt Date: 20090715
  Transmission Date: 20100710
  Serious: No
  Sender: FDA-Public Use
  Company Number: US-ALLERGAN-0909914US

PATIENT
  Sex: Male

DRUGS (4)
  1. RESTASIS [Suspect]
     Indication: DRY EYE
     Dosage: UNK, BID
     Route: 047
  2. SYSTANE [Concomitant]
     Indication: DRY EYE
  3. GENTEAL [Concomitant]
     Indication: DRY EYE
  4. TEARS [Concomitant]
     Indication: DRY EYE

REACTIONS (2)
  - EYE IRRITATION [None]
  - EYE PRURITUS [None]
